FAERS Safety Report 7392426-1 (Version None)
Quarter: 2011Q1

REPORT INFORMATION
  Report Type: 
  Country: None (occurrence: None)
  Receive Date: 20110330
  Receipt Date: 20110330
  Transmission Date: 20110831
  Serious: Yes (Other)
  Sender: FDA-Public Use
  Company Number: None

PATIENT
  Age: 18 Year
  Sex: Male
  Weight: 63.05 kg

DRUGS (1)
  1. ZITHROMAX [Suspect]
     Indication: SINUSITIS
     Dosage: 5-DAY DOSAGE 5-DAY PO
     Route: 048
     Dates: start: 20110205, end: 20110209

REACTIONS (1)
  - TENDON DISORDER [None]
